FAERS Safety Report 6221691-9 (Version None)
Quarter: 2009Q2

REPORT INFORMATION
  Report Type: 
  Country: None (occurrence: None)
  Receive Date: 20090610
  Receipt Date: 20090609
  Transmission Date: 20091009
  Serious: Yes (Hospitalization)
  Sender: FDA-Public Use
  Company Number: US-B.I. PHARMACEUTICALS,INC./RIDGEFIELD-2009-BP-02454BP

PATIENT
  Sex: Male

DRUGS (6)
  1. SPIRIVA [Suspect]
     Indication: CHRONIC OBSTRUCTIVE PULMONARY DISEASE
     Dosage: 18MCG
     Route: 055
     Dates: start: 20070101
  2. SPIRIVA [Suspect]
     Indication: EMPHYSEMA
  3. LENTE INSULIN [Concomitant]
     Indication: DIABETES MELLITUS
     Route: 058
     Dates: start: 20060101
  4. APIDRA INSULIN [Concomitant]
     Indication: DIABETES MELLITUS
  5. NORVASC [Concomitant]
     Indication: HYPERTENSION
  6. BENICAR [Concomitant]
     Indication: HYPERTENSION

REACTIONS (2)
  - COLLAPSE OF LUNG [None]
  - PNEUMONIA [None]
